FAERS Safety Report 7007543-5 (Version None)
Quarter: 2010Q3

REPORT INFORMATION
  Report Type: 
  Country: None (occurrence: None)
  Receive Date: 20100916
  Receipt Date: 20100909
  Transmission Date: 20110219
  Serious: Yes (Other)
  Sender: FDA-Public Use
  Company Number: 2010SP047405

PATIENT
  Age: 68 Year
  Sex: Female
  Weight: 38 kg

DRUGS (14)
  1. ROCURONIUM BROMIDE [Suspect]
     Indication: NEUROMUSCULAR BLOCKING THERAPY
     Dosage: 30 MG;ONCE;IV
     Route: 042
  2. MIDAZOLAM (OTHER MFR) (MIDAZOLAM /00634101/) [Suspect]
     Indication: INDUCTION OF ANAESTHESIA
     Dosage: 1 MG
  3. FENTANYL-100 [Suspect]
     Indication: INDUCTION OF ANAESTHESIA
     Dosage: 200 MCG
  4. SEVOFLURANE [Suspect]
     Indication: INDUCTION OF ANAESTHESIA
     Dosage: 0.2 PCT; 0.5 PCT
  5. SEVOFLURANE [Suspect]
     Indication: MAINTENANCE OF ANAESTHESIA
     Dosage: 0.2 PCT; 0.5 PCT
  6. ROPIVACAINE (ROPIVACAINE) [Suspect]
     Indication: ANALGESIC THERAPY
     Dosage: 6 ML; INBO; 2 ML; ED
  7. METOPROL TARTRATE [Concomitant]
  8. ISOSORBIDE DINITRATE [Concomitant]
  9. FROSEMIDE [Concomitant]
  10. TRICHLORMETHIAZIDE [Concomitant]
  11. SIMVASTATIN [Concomitant]
  12. LIDOCAINE [Concomitant]
  13. DOBUTAMINE [Concomitant]
  14. TRANSFUSION [Concomitant]

REACTIONS (4)
  - CARDIAC DISORDER [None]
  - EJECTION FRACTION DECREASED [None]
  - VENTRICULAR DYSFUNCTION [None]
  - VENTRICULAR HYPOKINESIA [None]
